FAERS Safety Report 14471182 (Version 2)
Quarter: 2018Q1

REPORT INFORMATION
  Report Type: Spontaneous
  Country: FR (occurrence: FR)
  Receive Date: 20180131
  Receipt Date: 20180228
  Transmission Date: 20180509
  Serious: Yes (Hospitalization)
  Sender: FDA-Public Use
  Company Number: FR-PFIZER INC-2018031945

PATIENT
  Age: 60 Year
  Sex: Female

DRUGS (28)
  1. LIDOCAINE AGUETTANT [Suspect]
     Active Substance: LIDOCAINE
     Dosage: 100 MG, SINGLE
     Route: 042
     Dates: start: 20160929, end: 20160929
  2. EPHEDRINE AGUETTANT [Suspect]
     Active Substance: EPHEDRINE
     Indication: ANAESTHESIA
     Dosage: 12 MG, SINGLE
     Route: 042
     Dates: start: 20160929, end: 20160929
  3. ZOPICLONE [Concomitant]
     Active Substance: ZOPICLONE
     Dosage: UNK
  4. LAROXYL [Concomitant]
     Active Substance: AMITRIPTYLINE HYDROCHLORIDE
     Dosage: UNK
  5. NEFOPAM MEDISOL [Suspect]
     Active Substance: NEFOPAM HYDROCHLORIDE
     Indication: ANAESTHESIA
     Dosage: 40 MG, SINGLE
     Route: 042
     Dates: start: 20160929, end: 20160929
  6. PARACETAMOL B. BRAUN [Suspect]
     Active Substance: ACETAMINOPHEN
     Dosage: 1 G, SINGLE
     Route: 042
     Dates: start: 20171219, end: 20171219
  7. ZYLORIC [Concomitant]
     Active Substance: ALLOPURINOL
     Dosage: UNK
  8. MONOPROST [Concomitant]
     Active Substance: LATANOPROST
     Dosage: UNK
  9. NEFOPAM MEDISOL [Suspect]
     Active Substance: NEFOPAM HYDROCHLORIDE
     Dosage: 20 MG, SINGLE
     Route: 042
     Dates: start: 20171219, end: 20171219
  10. KETAMINE RENAUDIN [Suspect]
     Active Substance: KETAMINE
     Dosage: 30 MG, SINGLE
     Route: 042
     Dates: start: 20171219, end: 20171219
  11. EPHEDRINE AGUETTANT [Suspect]
     Active Substance: EPHEDRINE
     Dosage: 12 MG, SINGLE
     Route: 042
     Dates: start: 20171219, end: 20171219
  12. CICLOSPORINE [Concomitant]
     Active Substance: CYCLOSPORINE
     Dosage: UNK
  13. BISOPROLOL [Concomitant]
     Active Substance: BISOPROLOL
     Dosage: UNK
  14. LASILIX /00032601/ [Concomitant]
     Active Substance: FUROSEMIDE
     Dosage: UNK
  15. NEFOPAM MEDISOL [Suspect]
     Active Substance: NEFOPAM HYDROCHLORIDE
     Dosage: 100 MG, DAILY
     Route: 042
     Dates: start: 20160929, end: 20161004
  16. DROPERIDOL AGUETTANT [Suspect]
     Active Substance: DROPERIDOL
     Dosage: 1.25 MG, SINGLE
     Route: 042
     Dates: start: 20171219, end: 20171219
  17. CELLCEPT [Concomitant]
     Active Substance: MYCOPHENOLATE MOFETIL\MYCOPHENOLATE MOFETIL HYDROCHLORIDE
     Dosage: UNK
  18. PREDNISONE. [Concomitant]
     Active Substance: PREDNISONE
     Dosage: UNK
  19. DIFFU K [Concomitant]
     Active Substance: POTASSIUM CHLORIDE
     Dosage: UNK
  20. REPAGLINIDE. [Concomitant]
     Active Substance: REPAGLINIDE
     Dosage: UNK
  21. ATRACURIUM BESILATE [Suspect]
     Active Substance: ATRACURIUM BESYLATE
     Indication: ANAESTHESIA
     Dosage: 30 MG, SINGLE
     Route: 042
     Dates: start: 20160929, end: 20160929
  22. LIDOCAINE AGUETTANT [Suspect]
     Active Substance: LIDOCAINE
     Dosage: 100 MG, SINGLE
     Route: 042
     Dates: start: 20171219, end: 20171219
  23. PARACETAMOL B. BRAUN [Suspect]
     Active Substance: ACETAMINOPHEN
     Indication: PAIN
     Dosage: 1 G, SINGLE
     Route: 042
     Dates: start: 20160929, end: 20160929
  24. ESOMEPRAZOLE [Concomitant]
     Active Substance: ESOMEPRAZOLE
     Dosage: UNK
  25. ATRACURIUM BESILATE [Suspect]
     Active Substance: ATRACURIUM BESYLATE
     Dosage: 50 MG, SINGLE
     Route: 042
     Dates: start: 20171219, end: 20171219
  26. KETAMINE RENAUDIN [Suspect]
     Active Substance: KETAMINE
     Indication: ANAESTHESIA
     Dosage: 30 MG, SINGLE
     Route: 042
     Dates: start: 20160929, end: 20160929
  27. ACUPAN [Suspect]
     Active Substance: NEFOPAM HYDROCHLORIDE
     Indication: PAIN
     Dosage: 20 MG, AS NEEDED (4X/DAY)
     Route: 048
     Dates: start: 20161005, end: 20161109
  28. DROPERIDOL AGUETTANT [Suspect]
     Active Substance: DROPERIDOL
     Indication: ANAESTHESIA
     Dosage: 1.25 MG, SINGLE
     Route: 042
     Dates: start: 20160929, end: 20160929

REACTIONS (1)
  - Mixed liver injury [Not Recovered/Not Resolved]

NARRATIVE: CASE EVENT DATE: 20161001
